FAERS Safety Report 7981879-3 (Version None)
Quarter: 2011Q4

REPORT INFORMATION
  Report Type: 
  Country: None (occurrence: None)
  Receive Date: 20111215
  Receipt Date: 20111205
  Transmission Date: 20120403
  Serious: Yes (Hospitalization, Other)
  Sender: FDA-Public Use
  Company Number: US-JNJFOC-20110906429

PATIENT
  Sex: Female

DRUGS (8)
  1. DURAGESIC-100 [Suspect]
     Indication: PAIN IN EXTREMITY
     Dosage: 100-200UG/HR 1 TO 2 PATCHES
     Route: 062
     Dates: start: 20110701
  2. SENNA [Concomitant]
     Indication: LAXATIVE SUPPORTIVE CARE
     Route: 048
  3. FENTANYL [Suspect]
     Route: 062
     Dates: start: 20020101
  4. FENTANYL [Suspect]
     Indication: PAIN
     Route: 062
  5. FENTANYL [Suspect]
     Route: 062
  6. DURAGESIC-100 [Suspect]
     Route: 062
     Dates: end: 20110801
  7. DURAGESIC-100 [Suspect]
     Route: 062
     Dates: start: 20110801, end: 20111129
  8. DURAGESIC-100 [Suspect]
     Indication: PAIN
     Route: 062
     Dates: start: 20111130

REACTIONS (27)
  - FALL [None]
  - GASTROINTESTINAL MOTILITY DISORDER [None]
  - BOWEL MOVEMENT IRREGULARITY [None]
  - WRONG TECHNIQUE IN DRUG USAGE PROCESS [None]
  - LIMB INJURY [None]
  - CONSTIPATION [None]
  - ADVERSE EVENT [None]
  - FAECAL INCONTINENCE [None]
  - HYOID BONE SUSPENSION [None]
  - LOSS OF CONSCIOUSNESS [None]
  - HYPERHIDROSIS [None]
  - DEAFNESS [None]
  - SENSORY LOSS [None]
  - JOINT INJURY [None]
  - APNOEIC ATTACK [None]
  - PAIN [None]
  - EXOSTOSIS [None]
  - TONSILLECTOMY [None]
  - VISUAL IMPAIRMENT [None]
  - SURGERY [None]
  - BACK PAIN [None]
  - SLEEP APNOEA SYNDROME [None]
  - DRUG ADMINISTERED AT INAPPROPRIATE SITE [None]
  - DISABILITY [None]
  - HYSTERECTOMY [None]
  - INFREQUENT BOWEL MOVEMENTS [None]
  - PRODUCT QUALITY ISSUE [None]
